FAERS Safety Report 8347810-6 (Version None)
Quarter: 2012Q2

REPORT INFORMATION
  Report Type: 
  Country: None (occurrence: None)
  Receive Date: 20120509
  Receipt Date: 20120501
  Transmission Date: 20120825
  Serious: Yes (Hospitalization, Congenital Anomaly)
  Sender: FDA-Public Use
  Company Number: US-GLAXOSMITHKLINE-A0976801A

PATIENT
  Sex: Male
  Weight: 5.5 kg

DRUGS (3)
  1. PAXIL [Suspect]
     Indication: ANXIETY
     Route: 064
  2. PROCARDIA [Concomitant]
  3. INSULIN [Concomitant]

REACTIONS (8)
  - VENTRICULAR SEPTAL DEFECT [None]
  - DOUBLE OUTLET RIGHT VENTRICLE [None]
  - FOETAL EXPOSURE DURING PREGNANCY [None]
  - HEART DISEASE CONGENITAL [None]
  - COARCTATION OF THE AORTA [None]
  - CONGENITAL HYDRONEPHROSIS [None]
  - BRONCHOMALACIA [None]
  - TRANSPOSITION OF THE GREAT VESSELS [None]
